FAERS Safety Report 16197173 (Version 2)
Quarter: 2019Q2

REPORT INFORMATION
  Report Type: Spontaneous
  Country: US (occurrence: US)
  Receive Date: 20190415
  Receipt Date: 20190416
  Transmission Date: 20190711
  Serious: No
  Sender: FDA-Public Use
  Company Number: US-PFIZER INC-2019153626

PATIENT
  Sex: Female

DRUGS (2)
  1. EFFEXOR XR [Suspect]
     Active Substance: VENLAFAXINE HYDROCHLORIDE
     Indication: ANXIETY
  2. EFFEXOR XR [Suspect]
     Active Substance: VENLAFAXINE HYDROCHLORIDE
     Indication: DEPRESSION
     Dosage: 37.5 MG, UNK
     Dates: start: 2009

REACTIONS (6)
  - Rosacea [Unknown]
  - Skin discolouration [Unknown]
  - Ecchymosis [Unknown]
  - Skin disorder [Unknown]
  - Flushing [Unknown]
  - Angiopathy [Unknown]

NARRATIVE: CASE EVENT DATE: 2011
